FAERS Safety Report 9521965 (Version 1)
Quarter: 2013Q3

REPORT INFORMATION
  Report Type: Spontaneous
  Country: US (occurrence: None)
  Receive Date: 20130822
  Receipt Date: 20130822
  Transmission Date: 20140515
  Serious: Yes (Hospitalization)
  Sender: FDA-Public Use
  Company Number: AEUSA201300292

PATIENT
  Age: 52 Year
  Sex: Male
  Weight: 99 kg

DRUGS (7)
  1. GAMUNEX C [Suspect]
     Indication: MULTIFOCAL MOTOR NEUROPATHY
     Route: 042
     Dates: start: 20130425, end: 201308
  2. LISINOPRIL [Concomitant]
  3. HYDROCHLOROTHIAZIDE [Concomitant]
  4. BENADRYL [Concomitant]
  5. PARACETAMOL [Concomitant]
  6. GAMMAGARD [Concomitant]
  7. PRIVIGEN [Concomitant]

REACTIONS (2)
  - Rash [None]
  - Eczema [None]
